FAERS Safety Report 16281912 (Version 1)
Quarter: 2019Q2

REPORT INFORMATION
  Report Type: Spontaneous
  Country: FR (occurrence: FR)
  Receive Date: 20190507
  Receipt Date: 20190507
  Transmission Date: 20190711
  Serious: Yes (Hospitalization, Other)
  Sender: FDA-Public Use
  Company Number: FR-MYLANLABS-2019M1039974

PATIENT
  Age: 84 Year
  Sex: Male
  Weight: 67 kg

DRUGS (13)
  1. CEFAZOLIN [Suspect]
     Active Substance: CEFAZOLIN
     Indication: VASCULAR DEVICE INFECTION
     Dosage: 2 GRAM, QOD
     Route: 042
     Dates: start: 20181011, end: 20181015
  2. INEGY [Concomitant]
     Active Substance: EZETIMIBE\SIMVASTATIN
     Dosage: UNK
  3. RIFAMPICINE [Suspect]
     Active Substance: RIFAMPIN
     Indication: VASCULAR DEVICE INFECTION
     Dosage: 600 MILLIGRAM, QD
     Route: 048
     Dates: start: 20181011
  4. ALPRAZOLAM. [Concomitant]
     Active Substance: ALPRAZOLAM
     Dosage: UNK
  5. KARDEGIC [Concomitant]
     Active Substance: ASPIRIN DL-LYSINE
     Dosage: UNK
  6. CINACALCET. [Concomitant]
     Active Substance: CINACALCET
     Dosage: UNK
  7. RIFAMPICINE [Suspect]
     Active Substance: RIFAMPIN
     Indication: STAPHYLOCOCCAL BACTERAEMIA
  8. VENLAFAXINE [Concomitant]
     Active Substance: VENLAFAXINE HYDROCHLORIDE
     Dosage: UNK
  9. SEVELAMER HCL [Concomitant]
     Active Substance: SEVELAMER HYDROCHLORIDE
     Dosage: UNK
  10. KAYEXALATE [Concomitant]
     Active Substance: SODIUM POLYSTYRENE SULFONATE
     Dosage: UNK
  11. LEVOFLOXACIN. [Suspect]
     Active Substance: LEVOFLOXACIN
     Indication: STAPHYLOCOCCAL BACTERAEMIA
     Dosage: 250 MILLIGRAM, QOD
     Route: 048
     Dates: start: 20181027, end: 20181103
  12. CLOXACILLINE                       /00012001/ [Suspect]
     Active Substance: CLOXACILLIN
     Indication: VASCULAR DEVICE INFECTION
     Dosage: 8 GRAM, QD
     Route: 042
     Dates: start: 20181016
  13. CALCIPARINE [Concomitant]
     Active Substance: HEPARIN CALCIUM
     Dosage: UNK

REACTIONS (5)
  - Coagulation factor X level decreased [Recovered/Resolved]
  - Thrombocytopenia [Recovered/Resolved]
  - Coagulation factor VII level decreased [Recovered/Resolved]
  - Prothrombin time shortened [Recovered/Resolved]
  - Prothrombin level decreased [Recovered/Resolved]

NARRATIVE: CASE EVENT DATE: 20181023
